FAERS Safety Report 25962705 (Version 2)
Quarter: 2025Q4

REPORT INFORMATION
  Report Type: Report from Study
  Country: US (occurrence: US)
  Receive Date: 20251027
  Receipt Date: 20251104
  Transmission Date: 20260117
  Serious: Yes (Other)
  Sender: ROCHE
  Company Number: US-ROCHE-3423040

PATIENT
  Age: 87 Year
  Sex: Female

DRUGS (1)
  1. ACTEMRA [Suspect]
     Active Substance: TOCILIZUMAB
     Indication: Rheumatoid arthritis
     Route: 058

REACTIONS (11)
  - Arrhythmia [Unknown]
  - Rash [Unknown]
  - Fall [Unknown]
  - Head injury [Unknown]
  - Skin abrasion [Unknown]
  - Asthma [Unknown]
  - Lung disorder [Unknown]
  - Myocardial infarction [Unknown]
  - Chest pain [Unknown]
  - Pain [Unknown]
  - Neck pain [Unknown]
